FAERS Safety Report 9258712 (Version 1)
Quarter: 2013Q2

REPORT INFORMATION
  Report Type: Spontaneous
  Country: US (occurrence: None)
  Receive Date: 20130425
  Receipt Date: 20130425
  Transmission Date: 20140414
  Serious: No
  Sender: FDA-Public Use
  Company Number: None

PATIENT
  Age: 69 Year
  Sex: Male
  Weight: 90.81 kg

DRUGS (1)
  1. PREVACID [Suspect]
     Indication: BARRETT^S OESOPHAGUS

REACTIONS (2)
  - Vomiting [None]
  - Product substitution issue [None]
